FAERS Safety Report 5046854-X (Version None)
Quarter: 2006Q2

REPORT INFORMATION
  Report Type: 
  Country: None (occurrence: None)
  Receive Date: 20060628
  Receipt Date: 20060622
  Transmission Date: 20061013
  Serious: Yes (Hospitalization)
  Sender: FDA-Public Use
  Company Number: HQWYE620201JUN06

PATIENT
  Age: 65 Year
  Sex: Male

DRUGS (4)
  1. TAZOCIN (PIPERACILLIN/ TAZOBACTAM, INJECTION) [Suspect]
     Indication: PNEUMONIA
     Dosage: 4.5 G 3X PER 1 DAY
     Route: 041
     Dates: start: 20060525, end: 20060529
  2. SEREVENT [Concomitant]
  3. FLUTIDE DISKUS (FLUTICASONE PROPIONATE) [Concomitant]
  4. SPIRIVA [Concomitant]

REACTIONS (2)
  - DRUG INEFFECTIVE [None]
  - INTERSTITIAL LUNG DISEASE [None]
